FAERS Safety Report 13908904 (Version 1)
Quarter: 2017Q3

REPORT INFORMATION
  Report Type: Report from Study
  Country: None (occurrence: US)
  Receive Date: 20170828
  Receipt Date: 20170828
  Transmission Date: 20171127
  Serious: Yes (Hospitalization)
  Sender: FDA-Public Use
  Company Number: US-ABBVIE-17K-163-2082699-00

PATIENT
  Age: 64 Year
  Sex: Female
  Weight: 101.7 kg

DRUGS (18)
  1. REXULTI [Suspect]
     Active Substance: BREXPIPRAZOLE
     Indication: DEPRESSION
     Route: 065
     Dates: start: 2017
  2. LEUCOVORIN. [Concomitant]
     Active Substance: LEUCOVORIN
     Indication: PRODUCT USED FOR UNKNOWN INDICATION
  3. METHOTREXATE. [Concomitant]
     Active Substance: METHOTREXATE
     Indication: RHEUMATOID ARTHRITIS
  4. VICODIN [Suspect]
     Active Substance: ACETAMINOPHEN\HYDROCODONE BITARTRATE
     Indication: BACK PAIN
     Route: 065
     Dates: end: 2017
  5. BUPROPION. [Concomitant]
     Active Substance: BUPROPION
     Indication: DEPRESSION
  6. FUROSEMIDE. [Concomitant]
     Active Substance: FUROSEMIDE
     Indication: FLUID RETENTION
  7. PRILOSEC [Concomitant]
     Active Substance: OMEPRAZOLE MAGNESIUM
     Indication: GASTROOESOPHAGEAL REFLUX DISEASE
  8. PREDNISONE. [Concomitant]
     Active Substance: PREDNISONE
     Indication: RHEUMATOID ARTHRITIS
  9. ASPIRIN. [Concomitant]
     Active Substance: ASPIRIN
     Indication: PRODUCT USED FOR UNKNOWN INDICATION
  10. VISTARIL [Concomitant]
     Active Substance: HYDROXYZINE PAMOATE
     Indication: ANXIETY
  11. NEURONTIN [Concomitant]
     Active Substance: GABAPENTIN
     Indication: NERVOUS SYSTEM DISORDER
  12. EFFEXOR [Concomitant]
     Active Substance: VENLAFAXINE HYDROCHLORIDE
     Indication: DEPRESSION
  13. SYNTHROID [Concomitant]
     Active Substance: LEVOTHYROXINE SODIUM
     Indication: HYPOTHYROIDISM
  14. CALCIUM + VITAMIN D [Concomitant]
     Active Substance: CALCIUM\VITAMIN D
     Indication: PRODUCT USED FOR UNKNOWN INDICATION
  15. DESYREL [Concomitant]
     Active Substance: TRAZODONE HYDROCHLORIDE
     Indication: DEPRESSION
  16. HUMIRA [Suspect]
     Active Substance: ADALIMUMAB
     Indication: RHEUMATOID ARTHRITIS
     Route: 058
     Dates: start: 2015
  17. ATORVASTATIN [Concomitant]
     Active Substance: ATORVASTATIN
     Indication: BLOOD CHOLESTEROL INCREASED
  18. DESYREL [Concomitant]
     Active Substance: TRAZODONE HYDROCHLORIDE
     Indication: SLEEP DISORDER THERAPY

REACTIONS (6)
  - Intervertebral disc protrusion [Recovered/Resolved]
  - Dizziness [Recovered/Resolved]
  - Deep vein thrombosis [Recovered/Resolved]
  - Constipation [Recovered/Resolved]
  - Fall [Recovered/Resolved]
  - Back pain [Not Recovered/Not Resolved]

NARRATIVE: CASE EVENT DATE: 201606
